FAERS Safety Report 15490775 (Version 1)
Quarter: 2018Q4

REPORT INFORMATION
  Report Type: Spontaneous
  Country: BE (occurrence: BE)
  Receive Date: 20181011
  Receipt Date: 20181011
  Transmission Date: 20190205
  Serious: Yes (Other)
  Sender: FDA-Public Use
  Company Number: BE-009507513-1810BEL003628

PATIENT
  Age: 46 Year
  Sex: Female
  Weight: 51 kg

DRUGS (4)
  1. ZYBAN [Suspect]
     Active Substance: BUPROPION HYDROCHLORIDE
     Indication: EX-TOBACCO USER
     Dosage: 150MG TWICE PER DAY
     Route: 048
     Dates: start: 20010118, end: 20010130
  2. ALCOHOL. [Suspect]
     Active Substance: ALCOHOL
  3. TRIAZOLAM. [Suspect]
     Active Substance: TRIAZOLAM
     Indication: SLEEP DISORDER
     Dosage: 0.25MG PER DAY
     Dates: start: 1994
  4. MERCILON [Suspect]
     Active Substance: DESOGESTREL\ETHINYL ESTRADIOL
     Indication: CONTRACEPTION
     Route: 048
     Dates: start: 1997

REACTIONS (9)
  - Disturbance in attention [Unknown]
  - Memory impairment [Unknown]
  - Speech disorder [Unknown]
  - Circulatory collapse [Unknown]
  - Seizure [Unknown]
  - Fear [Unknown]
  - Nasopharyngitis [Unknown]
  - Abnormal behaviour [Unknown]
  - Mental impairment [Unknown]

NARRATIVE: CASE EVENT DATE: 20010123
